FAERS Safety Report 14262630 (Version 2)
Quarter: 2018Q3

REPORT INFORMATION
  Report Type: Spontaneous
  Country: US (occurrence: US)
  Receive Date: 20171208
  Receipt Date: 20180927
  Transmission Date: 20181010
  Serious: No
  Sender: FDA-Public Use
  Company Number: US-PFIZER INC-2017524966

PATIENT
  Sex: Female

DRUGS (1)
  1. IBRANCE [Suspect]
     Active Substance: PALBOCICLIB
     Dosage: UNK

REACTIONS (2)
  - Malaise [Unknown]
  - Fatigue [Unknown]
